FAERS Safety Report 8476245-0 (Version None)
Quarter: 2012Q2

REPORT INFORMATION
  Report Type: 
  Country: None (occurrence: None)
  Receive Date: 20120622
  Receipt Date: 20120522
  Transmission Date: 20120825
  Serious: Yes (Hospitalization)
  Sender: FDA-Public Use
  Company Number: 2012SP033356

PATIENT
  Age: 3 Year
  Sex: Female

DRUGS (4)
  1. IBUPROFEN [Concomitant]
  2. FENTANYL CITRATE [Suspect]
     Indication: GENERAL ANAESTHESIA
     Dosage: 30 ML;IV
     Route: 042
     Dates: start: 20120404, end: 20120404
  3. NORCURON [Suspect]
     Indication: GENERAL ANAESTHESIA
     Dosage: 30 ML;IV
     Route: 042
     Dates: start: 20120404, end: 20120404
  4. SEVOFLURANE [Suspect]
     Indication: GENERAL ANAESTHESIA
     Dosage: 6 PCT;PRN;INH
     Route: 055
     Dates: start: 20120404, end: 20120404

REACTIONS (4)
  - ALANINE AMINOTRANSFERASE INCREASED [None]
  - HYPERTRANSAMINASAEMIA [None]
  - PYREXIA [None]
  - ASPARTATE AMINOTRANSFERASE INCREASED [None]
